FAERS Safety Report 10429679 (Version 1)
Quarter: 2014Q3

REPORT INFORMATION
  Report Type: Spontaneous
  Country: NO (occurrence: NO)
  Receive Date: 20140904
  Receipt Date: 20140904
  Transmission Date: 20150326
  Serious: Yes (Hospitalization)
  Sender: FDA-Public Use
  Company Number: PHHY2014NO106332

PATIENT
  Age: 50 Year
  Sex: Male

DRUGS (9)
  1. RITALIN [Suspect]
     Active Substance: METHYLPHENIDATE HYDROCHLORIDE
     Indication: ATTENTION DEFICIT/HYPERACTIVITY DISORDER
     Dosage: 10 MG
     Route: 048
     Dates: start: 2006
  2. ATENOLOL. [Concomitant]
     Active Substance: ATENOLOL
     Dosage: 100 MG, QD
  3. DIGOXIN ^NYCOMED^ [Concomitant]
     Indication: ATRIAL FIBRILLATION
     Dosage: 0.125 MG, QD
     Route: 048
     Dates: start: 201312
  4. MAREVAN [Concomitant]
     Active Substance: WARFARIN SODIUM
     Indication: ATRIAL FIBRILLATION
     Dosage: 19 DF, PER WEEK
     Route: 048
     Dates: start: 201312
  5. BURINEX [Concomitant]
     Active Substance: BUMETANIDE
     Dosage: 3 MG (2 MG IN THE MORNING AND 1 MG FORENOON)
     Route: 048
     Dates: start: 201312
  6. SPIRIX [Concomitant]
     Active Substance: SPIRONOLACTONE
     Indication: CARDIAC FAILURE
     Dosage: 25 MG, QD
     Route: 048
     Dates: start: 201312
  7. RAMIPRIL. [Concomitant]
     Active Substance: RAMIPRIL
     Indication: CARDIAC FAILURE
     Dosage: 10 MG, QD
     Route: 048
     Dates: start: 201312
  8. KALEORID [Concomitant]
     Active Substance: POTASSIUM CHLORIDE
     Indication: SUPPLEMENTATION THERAPY
     Dosage: 750 MG, QD
     Route: 048
     Dates: start: 201312
  9. RITALIN [Suspect]
     Active Substance: METHYLPHENIDATE HYDROCHLORIDE
     Dosage: DECREASED DOSE

REACTIONS (2)
  - Atrial fibrillation [Not Recovered/Not Resolved]
  - Cardiac failure [Not Recovered/Not Resolved]

NARRATIVE: CASE EVENT DATE: 201312
